FAERS Safety Report 7141875-5 (Version None)
Quarter: 2010Q4

REPORT INFORMATION
  Report Type: 
  Country: None (occurrence: None)
  Receive Date: 20101207
  Receipt Date: 20101126
  Transmission Date: 20110411
  Serious: Yes (Other)
  Sender: FDA-Public Use
  Company Number: FR-SANOFI-AVENTIS-2010SA071689

PATIENT
  Age: 58 Year
  Sex: Male

DRUGS (12)
  1. KETEK [Suspect]
     Route: 048
     Dates: start: 20100825, end: 20100902
  2. AUGMENTIN [Suspect]
     Route: 048
     Dates: start: 20100819, end: 20100825
  3. CORTANCYL [Concomitant]
     Route: 048
     Dates: start: 20090501
  4. METHOTREXATE [Concomitant]
     Route: 048
     Dates: start: 20090501
  5. SPECIAFOLDINE [Concomitant]
     Route: 048
  6. FOSAMAX [Concomitant]
     Route: 048
  7. CACIT D3 [Concomitant]
     Route: 048
  8. MOPRAL [Concomitant]
     Route: 065
  9. LEVOTHYROX [Concomitant]
     Route: 065
  10. ATARAX [Concomitant]
     Route: 065
  11. DOLIPRANE [Concomitant]
     Route: 065
  12. SINGULAIR [Concomitant]
     Route: 065
     Dates: start: 20100819, end: 20100825

REACTIONS (2)
  - CYTOLYTIC HEPATITIS [None]
  - JAUNDICE [None]
